FAERS Safety Report 24924120 (Version 1)
Quarter: 2025Q1

REPORT INFORMATION
  Report Type: Spontaneous
  Country: EU (occurrence: EU)
  Receive Date: 20250204
  Receipt Date: 20250204
  Transmission Date: 20250409
  Serious: Yes (Life-Threatening)
  Sender: ETHYPHARM
  Company Number: None

PATIENT

DRUGS (2)
  1. BUPRENORPHINE HYDROCHLORIDE [Suspect]
     Active Substance: BUPRENORPHINE HYDROCHLORIDE
     Route: 042
     Dates: start: 2016
  2. NICOTINE\TOBACCO LEAF [Suspect]
     Active Substance: NICOTINE\TOBACCO LEAF
     Route: 055

REACTIONS (13)
  - Drug abuse [Recovering/Resolving]
  - Behavioural addiction [Recovering/Resolving]
  - Intentional product misuse [Recovering/Resolving]
  - General physical health deterioration [Recovering/Resolving]
  - Blood culture positive [Recovered/Resolved]
  - Hypotension [Recovered/Resolved]
  - Hypoxia [Recovered/Resolved]
  - Pyrexia [Recovered/Resolved]
  - Hypoalbuminaemia [Recovering/Resolving]
  - Endocarditis staphylococcal [Recovering/Resolving]
  - Multiple organ dysfunction syndrome [Recovered/Resolved]
  - Aspergilloma [Not Recovered/Not Resolved]
  - Intentional product use issue [Unknown]

NARRATIVE: CASE EVENT DATE: 19930101
